FAERS Safety Report 16826300 (Version 2)
Quarter: 2020Q2

REPORT INFORMATION
  Report Type: Report from Study
  Country: US (occurrence: US)
  Receive Date: 20190919
  Receipt Date: 20200511
  Transmission Date: 20200713
  Serious: Yes (Hospitalization)
  Sender: FDA-Public Use
  Company Number: US-EISAI MEDICAL RESEARCH-EC-2019-061745

PATIENT
  Age: 42 Year
  Sex: Male
  Weight: 78 kg

DRUGS (10)
  1. LENVIMA [Suspect]
     Active Substance: LENVATINIB
     Indication: THYROID CANCER METASTATIC
     Route: 048
     Dates: start: 20190827, end: 20190904
  2. LENVIMA [Suspect]
     Active Substance: LENVATINIB
     Route: 048
  3. LORTAB [Concomitant]
     Active Substance: ACETAMINOPHEN\HYDROCODONE BITARTRATE
  4. OXTELLAR XR [Concomitant]
     Active Substance: OXCARBAZEPINE
  5. EVOXAC [Concomitant]
     Active Substance: CEVIMELINE HYDROCHLORIDE
  6. LENVIMA [Suspect]
     Active Substance: LENVATINIB
     Route: 048
  7. CALCIUM [Concomitant]
     Active Substance: CALCIUM
  8. CEVIMELINE. [Concomitant]
     Active Substance: CEVIMELINE
  9. SYNTHROID [Concomitant]
     Active Substance: LEVOTHYROXINE SODIUM
  10. VITAMIN D [Concomitant]
     Active Substance: VITAMIN D NOS

REACTIONS (5)
  - Constipation [Unknown]
  - Chest pain [Unknown]
  - Pulmonary pain [Unknown]
  - Blood pressure increased [Recovering/Resolving]
  - Hypophagia [Unknown]

NARRATIVE: CASE EVENT DATE: 2019
